FAERS Safety Report 8380865-1 (Version None)
Quarter: 2012Q2

REPORT INFORMATION
  Report Type: 
  Country: None (occurrence: None)
  Receive Date: 20120523
  Receipt Date: 20120515
  Transmission Date: 20120825
  Serious: Yes (Hospitalization)
  Sender: FDA-Public Use
  Company Number: US-MERCK-1103USA00268

PATIENT
  Age: 74 Year
  Sex: Female
  Weight: 65 kg

DRUGS (13)
  1. FOSAMAX [Suspect]
     Route: 048
     Dates: start: 19960101, end: 20090328
  2. ATENOLOL [Concomitant]
     Indication: HYPERTENSION
     Route: 065
     Dates: start: 19970101
  3. FOSAMAX [Suspect]
     Indication: OSTEOPOROSIS PROPHYLAXIS
     Route: 048
     Dates: end: 20090101
  4. CALCIUM (UNSPECIFIED) AND VITAMIN D (UNSPECIFIED) [Concomitant]
     Route: 065
     Dates: start: 19950101
  5. FOSAMAX [Suspect]
     Route: 048
     Dates: start: 20090319, end: 20090101
  6. ALENDRONATE SODIUM [Suspect]
     Indication: OSTEOPOROSIS PROPHYLAXIS
     Route: 048
  7. FOSAMAX [Suspect]
     Route: 048
     Dates: start: 19960101, end: 20090328
  8. ALENDRONATE SODIUM [Suspect]
     Indication: OSTEOPOROSIS
     Route: 048
  9. FOSAMAX [Suspect]
     Route: 048
     Dates: start: 20030701, end: 20040227
  10. FOSAMAX [Suspect]
     Indication: OSTEOPOROSIS
     Route: 048
     Dates: end: 20090101
  11. FOSAMAX [Suspect]
     Route: 048
     Dates: start: 20030701, end: 20040227
  12. HYDROCHLOROTHIAZIDE [Concomitant]
     Route: 065
     Dates: start: 19970101
  13. FOSAMAX [Suspect]
     Route: 048
     Dates: start: 20090319, end: 20090101

REACTIONS (74)
  - FEMUR FRACTURE [None]
  - DEHYDRATION [None]
  - LUNG NEOPLASM [None]
  - OSTEOARTHRITIS [None]
  - JOINT SWELLING [None]
  - CARDIAC DISORDER [None]
  - SPINAL OSTEOARTHRITIS [None]
  - SINUS DISORDER [None]
  - PULMONARY HYPERTENSION [None]
  - PAIN IN EXTREMITY [None]
  - FATIGUE [None]
  - FALL [None]
  - INCISIONAL HERNIA [None]
  - MUSCLE STRAIN [None]
  - BREAST CALCIFICATIONS [None]
  - MALAISE [None]
  - MUSCULAR WEAKNESS [None]
  - TOOTH DISORDER [None]
  - DRUG HYPERSENSITIVITY [None]
  - IMPAIRED HEALING [None]
  - BENIGN NEOPLASM [None]
  - AORTIC STENOSIS [None]
  - AORTIC VALVE DISEASE [None]
  - TACHYARRHYTHMIA [None]
  - BLOOD PRESSURE INADEQUATELY CONTROLLED [None]
  - CARDIOMEGALY [None]
  - PERIPHERAL VASCULAR DISORDER [None]
  - DIARRHOEA [None]
  - COUGH [None]
  - ARTERIOSCLEROSIS [None]
  - ATRIAL FIBRILLATION [None]
  - ARTHRITIS [None]
  - CERUMEN IMPACTION [None]
  - LIPIDS INCREASED [None]
  - TYPE 1 DIABETES MELLITUS [None]
  - SPINAL COLUMN STENOSIS [None]
  - POOR PERIPHERAL CIRCULATION [None]
  - CHONDROCALCINOSIS [None]
  - ANXIETY [None]
  - ELECTROCARDIOGRAM ST-T CHANGE [None]
  - HYPERTENSION [None]
  - CATARACT [None]
  - CAROTID ARTERY OCCLUSION [None]
  - SCIATICA [None]
  - HYPERCHOLESTEROLAEMIA [None]
  - PERIPHERAL COLDNESS [None]
  - BACK PAIN [None]
  - DIVERTICULITIS [None]
  - FRACTURE NONUNION [None]
  - MYALGIA [None]
  - ARTHRALGIA [None]
  - BLOOD SODIUM DECREASED [None]
  - WRIST FRACTURE [None]
  - DRUG INTOLERANCE [None]
  - GAIT DISTURBANCE [None]
  - DIVERTICULUM [None]
  - VASCULAR CALCIFICATION [None]
  - GASTROINTESTINAL DISORDER [None]
  - ADVERSE DRUG REACTION [None]
  - DYSPNOEA [None]
  - NODULE [None]
  - TENDONITIS [None]
  - URINE ODOUR ABNORMAL [None]
  - RHEUMATOID ARTHRITIS [None]
  - FIBROADENOMA OF BREAST [None]
  - EYE DISORDER [None]
  - RENAL FAILURE CHRONIC [None]
  - APPENDIX DISORDER [None]
  - CORONARY ARTERY DISEASE [None]
  - SUPRAVENTRICULAR EXTRASYSTOLES [None]
  - CAROTID ARTERY STENOSIS [None]
  - CHONDROCALCINOSIS PYROPHOSPHATE [None]
  - FIBROCYSTIC BREAST DISEASE [None]
  - CARDIAC MURMUR [None]
